FAERS Safety Report 23195360 (Version 1)
Quarter: 2023Q4

REPORT INFORMATION
  Report Type: Report from Study
  Country: TW (occurrence: TW)
  Receive Date: 20231117
  Receipt Date: 20231117
  Transmission Date: 20240109
  Serious: Yes (Hospitalization)
  Sender: FDA-Public Use
  Company Number: TW-ALXN-A202302364

PATIENT
  Sex: Female
  Weight: 42 kg

DRUGS (4)
  1. SOLIRIS [Suspect]
     Active Substance: ECULIZUMAB
     Indication: Atypical haemolytic uraemic syndrome
     Dosage: 900 MILLIGRAM, UNK
     Route: 042
     Dates: start: 20200709, end: 20200909
  2. SOLIRIS [Suspect]
     Active Substance: ECULIZUMAB
     Dosage: 1200 MILLIGRAM, UNK
     Route: 042
     Dates: start: 20200910
  3. MYCOPHENOLATE MOFETIL [Concomitant]
     Active Substance: MYCOPHENOLATE MOFETIL
     Indication: Immunosuppressant drug therapy
     Dosage: 250 MILLIGRAM, Q12H
     Route: 048
     Dates: start: 20200731
  4. TACROLIMUS [Concomitant]
     Active Substance: TACROLIMUS
     Indication: Immunosuppressant drug therapy
     Dosage: 7 MG (4MG IN MORNING AND 3MG AT NIGHT)
     Route: 048
     Dates: start: 20201026

REACTIONS (1)
  - Chronic tonsillitis [Recovered/Resolved]

NARRATIVE: CASE EVENT DATE: 20200101
